FAERS Safety Report 23034472 (Version 2)
Quarter: 2024Q2

REPORT INFORMATION
  Report Type: Spontaneous
  Country: DE (occurrence: DE)
  Receive Date: 20231005
  Receipt Date: 20240419
  Transmission Date: 20240716
  Serious: Yes (Hospitalization)
  Sender: FDA-Public Use
  Company Number: DE-EMA-DD-20230612-7180175-141016

PATIENT
  Age: 64 Year
  Sex: Female
  Weight: 70 kg

DRUGS (9)
  1. LENALIDOMIDE [Suspect]
     Active Substance: LENALIDOMIDE
     Indication: Plasma cell myeloma
     Dosage: 25 MILLIGRAM, DAILY
     Route: 048
     Dates: start: 20190212, end: 20190213
  2. LENALIDOMIDE [Suspect]
     Active Substance: LENALIDOMIDE
     Dosage: 25 MILLIGRAM, DAILY
     Route: 048
     Dates: start: 20190124, end: 20190212
  3. ISATUXIMAB [Suspect]
     Active Substance: ISATUXIMAB
     Indication: Plasma cell myeloma
     Dosage: 10 MILLIGRAM/KILOGRAM, DAILY
     Route: 040
     Dates: start: 20190207, end: 20190207
  4. ISATUXIMAB [Suspect]
     Active Substance: ISATUXIMAB
     Dosage: 10 MILLIGRAM/KILOGRAM, DAILY
     Route: 065
     Dates: start: 20190124, end: 20190124
  5. CARFILZOMIB [Suspect]
     Active Substance: CARFILZOMIB
     Indication: Plasma cell myeloma
     Dosage: 63.48 MILLIGRAM, DAILY
     Route: 040
     Dates: start: 20190208, end: 20190208
  6. CARFILZOMIB [Suspect]
     Active Substance: CARFILZOMIB
     Dosage: 35.27 MILLIGRAM, DAILY
     Route: 065
     Dates: start: 20190124, end: 20190124
  7. DEXAMETHASONE [Suspect]
     Active Substance: DEXAMETHASONE
     Indication: Plasma cell myeloma
     Dosage: 8 MILLIGRAM, DAILY
     Route: 040
     Dates: start: 20190208, end: 20190208
  8. DEXAMETHASONE [Suspect]
     Active Substance: DEXAMETHASONE
     Dosage: 40 MILLIGRAM, DAILY
     Route: 065
     Dates: start: 20190124, end: 20190124
  9. NOVALGIN [Concomitant]
     Indication: Product used for unknown indication
     Dosage: 40 GTT DROPS
     Route: 065
     Dates: start: 201812, end: 201812

REACTIONS (3)
  - Back pain [Recovered/Resolved]
  - Back pain [Recovered/Resolved]
  - Respiratory failure [Recovered/Resolved]

NARRATIVE: CASE EVENT DATE: 20190126
